FAERS Safety Report 14614068 (Version 1)
Quarter: 2018Q1

REPORT INFORMATION
  Report Type: Report from Study
  Country: DE (occurrence: DE)
  Receive Date: 20180308
  Receipt Date: 20180308
  Transmission Date: 20180509
  Serious: Yes (Hospitalization)
  Sender: FDA-Public Use
  Company Number: DE-PFIZER INC-2018092501

PATIENT
  Sex: Female

DRUGS (5)
  1. XELODA [Suspect]
     Active Substance: CAPECITABINE
     Indication: COLORECTAL CANCER
     Dosage: 2000 MG/M2, UNK
     Route: 048
     Dates: start: 20100101
  2. IRINOTECAN HCL [Suspect]
     Active Substance: IRINOTECAN HYDROCHLORIDE
     Indication: COLORECTAL CANCER
     Dosage: UNK
     Dates: start: 20100101
  3. XELODA [Suspect]
     Active Substance: CAPECITABINE
     Dosage: 2000 MG/M2, EVERY 3 WEEKS
     Route: 048
     Dates: start: 20100308
  4. OXALIPLATIN. [Concomitant]
     Active Substance: OXALIPLATIN
     Dosage: 1 (UNSPECIFIED UNIT OF MEASURE), EVERY 3 WEEKS
     Route: 065
     Dates: start: 20100308
  5. AVASTIN [Suspect]
     Active Substance: BEVACIZUMAB
     Indication: COLORECTAL CANCER
     Dosage: 1 (UNSPECIFIED UNIT OF MEASURE), EVERY 3 WEEKS
     Route: 042
     Dates: start: 20100308

REACTIONS (1)
  - Neuralgia [Recovered/Resolved]

NARRATIVE: CASE EVENT DATE: 20100523
